FAERS Safety Report 6648813-X (Version None)
Quarter: 2010Q1

REPORT INFORMATION
  Report Type: 
  Country: None (occurrence: None)
  Receive Date: 20100324
  Receipt Date: 20100312
  Transmission Date: 20100710
  Serious: Yes (Other)
  Sender: FDA-Public Use
  Company Number: PHEH2010US03118

PATIENT
  Sex: Female

DRUGS (2)
  1. RECLAST [Suspect]
     Indication: OSTEOPOROSIS
     Dosage: UNK
     Dates: start: 20100222
  2. DILANTIN [Concomitant]
     Indication: CONVULSION
     Dosage: UNK

REACTIONS (1)
  - BLOOD PARATHYROID HORMONE INCREASED [None]
